FAERS Safety Report 5762501-3 (Version None)
Quarter: 2008Q2

REPORT INFORMATION
  Report Type: 
  Country: None (occurrence: None)
  Receive Date: 20080609
  Receipt Date: 20080602
  Transmission Date: 20081010
  Serious: Yes (Hospitalization)
  Sender: FDA-Public Use
  Company Number: A0728537A

PATIENT
  Age: 68 Year
  Sex: Male

DRUGS (11)
  1. CARVEDILOL [Suspect]
     Dosage: 6.25MG TWICE PER DAY
     Route: 048
     Dates: start: 20050101
  2. LISINOPRIL [Concomitant]
  3. DIGOXIN [Concomitant]
  4. ASPIRIN [Concomitant]
  5. PHENERGAN [Concomitant]
  6. FUROSEMIDE [Concomitant]
  7. CLOPIDOGREL BISULFATE [Concomitant]
  8. IBUROFEN [Concomitant]
  9. GLIPIZIDE [Concomitant]
  10. QUETIAPINE FUMARATE [Concomitant]
  11. METHADONE HCL [Concomitant]

REACTIONS (4)
  - CARDIAC FAILURE CONGESTIVE [None]
  - DYSPNOEA [None]
  - OEDEMA [None]
  - OEDEMA PERIPHERAL [None]
